FAERS Safety Report 9700388 (Version 1)
Quarter: 2013Q4

REPORT INFORMATION
  Report Type: Spontaneous
  Country: US (occurrence: US)
  Receive Date: 20131121
  Receipt Date: 20131121
  Transmission Date: 20140711
  Serious: Yes (Other)
  Sender: FDA-Public Use
  Company Number: US-PURDUE-USA-2013-0108553

PATIENT
  Age: 50 Year
  Sex: Male

DRUGS (6)
  1. OXYCONTIN (NDA 22-272) [Suspect]
     Indication: PAIN
     Dosage: 40 MG, BID
     Route: 048
     Dates: start: 2007
  2. OXYCONTIN (NDA 22-272) [Suspect]
     Dosage: 80 MG, BID
     Route: 048
  3. OXYCONTIN (NDA 22-272) [Suspect]
     Dosage: 160 MG, BID
     Route: 048
     Dates: end: 2010
  4. OXYCONTIN (NDA 22-272) [Suspect]
     Dosage: 160 MG, QID
     Route: 048
     Dates: start: 2011
  5. OXYCONTIN (NDA 22-272) [Suspect]
     Dosage: 800 MG, DAILY
     Route: 048
     Dates: start: 2011
  6. OXYCONTIN (NDA 22-272) [Suspect]
     Dosage: 80 MG, 12-15/DAY
     Dates: end: 201206

REACTIONS (7)
  - Drug dependence [Unknown]
  - Intentional drug misuse [Unknown]
  - Drug prescribing error [Unknown]
  - Drug tolerance [Unknown]
  - Drug ineffective [Unknown]
  - Suicidal ideation [Unknown]
  - Depression [Unknown]
